FAERS Safety Report 5254144-5 (Version None)
Quarter: 2007Q1

REPORT INFORMATION
  Report Type: 
  Country: None (occurrence: None)
  Receive Date: 20070302
  Receipt Date: 20070219
  Transmission Date: 20070707
  Serious: Yes (Life-Threatening, Hospitalization)
  Sender: FDA-Public Use
  Company Number: FI-ROCHE-483628

PATIENT
  Age: 56 Year
  Sex: Female

DRUGS (7)
  1. XELODA [Suspect]
     Indication: BREAST CANCER
     Route: 048
     Dates: start: 20040515
  2. XELODA [Suspect]
     Route: 048
     Dates: start: 20070218, end: 20070218
  3. CIPRALEX [Suspect]
     Indication: DRUG USE FOR UNKNOWN INDICATION
     Route: 065
     Dates: start: 20070218, end: 20070218
  4. ZOPINOX [Suspect]
     Indication: DRUG USE FOR UNKNOWN INDICATION
     Route: 065
     Dates: start: 20070218, end: 20070218
  5. HERCEPTIN [Concomitant]
     Indication: BREAST CANCER
     Route: 042
     Dates: start: 20040615
  6. AROMASIN [Concomitant]
     Indication: BREAST CANCER
  7. BONEFOS [Concomitant]

REACTIONS (12)
  - ALANINE AMINOTRANSFERASE INCREASED [None]
  - ASPARTATE AMINOTRANSFERASE INCREASED [None]
  - ASTHENIA [None]
  - DEPRESSED LEVEL OF CONSCIOUSNESS [None]
  - HEPATIC ENZYME INCREASED [None]
  - HYPOTENSION [None]
  - INTENTIONAL OVERDOSE [None]
  - MULTIPLE DRUG OVERDOSE INTENTIONAL [None]
  - SOMNOLENCE [None]
  - SUICIDE ATTEMPT [None]
  - TACHYCARDIA [None]
  - VOMITING [None]
